FAERS Safety Report 14047516 (Version 2)
Quarter: 2017Q4

REPORT INFORMATION
  Report Type: Report from Study
  Country: None (occurrence: US)
  Receive Date: 20171005
  Receipt Date: 20171127
  Transmission Date: 20180321
  Serious: Yes (Hospitalization, Other)
  Sender: FDA-Public Use
  Company Number: US-ABBVIE-17K-163-2103644-00

PATIENT
  Age: 37 Year
  Sex: Female
  Weight: 66.74 kg

DRUGS (2)
  1. PENTASA [Concomitant]
     Active Substance: MESALAMINE
     Indication: CROHN^S DISEASE
  2. HUMIRA [Suspect]
     Active Substance: ADALIMUMAB
     Indication: CROHN^S DISEASE
     Route: 058
     Dates: start: 200809, end: 20170813

REACTIONS (6)
  - Astigmatism [Not Recovered/Not Resolved]
  - Weight increased [Recovered/Resolved]
  - Headache [Recovered/Resolved]
  - Escherichia sepsis [Recovered/Resolved]
  - Intestinal obstruction [Recovered/Resolved]
  - Night blindness [Not Recovered/Not Resolved]

NARRATIVE: CASE EVENT DATE: 200809
